FAERS Safety Report 7161456-7 (Version None)
Quarter: 2010Q4

REPORT INFORMATION
  Report Type: 
  Country: None (occurrence: None)
  Receive Date: 20101215
  Receipt Date: 20101203
  Transmission Date: 20110411
  Serious: Yes (Hospitalization)
  Sender: FDA-Public Use
  Company Number: PHHY2010JP80180

PATIENT
  Age: 37 Year
  Sex: Male

DRUGS (2)
  1. TEGRETOL [Suspect]
     Indication: RETROPERITONEAL FIBROSIS
     Route: 048
  2. TEGRETOL [Suspect]
     Indication: PAIN

REACTIONS (6)
  - ASTHENIA [None]
  - DIPLOPIA [None]
  - DIZZINESS [None]
  - DRUG LEVEL INCREASED [None]
  - DRUG TOXICITY [None]
  - OPTICOKINETIC NYSTAGMUS TESTS ABNORMAL [None]
